FAERS Safety Report 4464741-2 (Version None)
Quarter: 2004Q4

REPORT INFORMATION
  Report Type: 
  Country: None (occurrence: None)
  Receive Date: 20041004
  Receipt Date: 20040708
  Transmission Date: 20050328
  Serious: No
  Sender: FDA-Public Use
  Company Number: 377648

PATIENT
  Age: 78 Year
  Sex: Female

DRUGS (3)
  1. COREG [Suspect]
     Route: 048
  2. ACTOS [Concomitant]
  3. LASIX [Concomitant]

REACTIONS (1)
  - BLOOD GLUCOSE INCREASED [None]
